FAERS Safety Report 24084451 (Version 1)
Quarter: 2024Q3

REPORT INFORMATION
  Report Type: Report from Study
  Country: DE (occurrence: DE)
  Receive Date: 20240712
  Receipt Date: 20240712
  Transmission Date: 20241016
  Serious: Yes (Hospitalization)
  Sender: ABBVIE
  Company Number: DE-ABBVIE-5835141

PATIENT
  Sex: Female

DRUGS (5)
  1. CARBIDOPA\LEVODOPA [Suspect]
     Active Substance: CARBIDOPA\LEVODOPA
     Indication: Parkinson^s disease
     Dosage: CRD: 2.9 ML/H
     Route: 050
  2. CARBIDOPA\LEVODOPA [Suspect]
     Active Substance: CARBIDOPA\LEVODOPA
     Dosage: CRD: 2.8 ML/H
     Route: 050
  3. CARBIDOPA\LEVODOPA [Suspect]
     Active Substance: CARBIDOPA\LEVODOPA
     Dosage: CRD: 0.1 ML/H
     Route: 050
     Dates: start: 20210708
  4. RIVASTIGMINE [Concomitant]
     Active Substance: RIVASTIGMINE
     Indication: Product used for unknown indication
  5. QUETIAPINE [Concomitant]
     Active Substance: QUETIAPINE
     Indication: Initial insomnia

REACTIONS (19)
  - Gait disturbance [Recovering/Resolving]
  - Dysdiadochokinesis [Unknown]
  - Orthostatic intolerance [Unknown]
  - Hypervitaminosis B6 [Unknown]
  - Freezing phenomenon [Unknown]
  - Agitation [Unknown]
  - Hallucination [Recovering/Resolving]
  - Dyskinesia [Unknown]
  - Anxiety [Unknown]
  - Fall [Unknown]
  - Initial insomnia [Recovering/Resolving]
  - Adjustment disorder with depressed mood [Unknown]
  - Bradykinesia [Unknown]
  - Parkinsonism [Unknown]
  - Memory impairment [Unknown]
  - Hypokinesia [Unknown]
  - Balance disorder [Unknown]
  - Hypokalaemia [Unknown]
  - Insomnia [Recovering/Resolving]
